FAERS Safety Report 18652857 (Version 1)
Quarter: 2020Q4

REPORT INFORMATION
  Report Type: Spontaneous
  Country: HR (occurrence: HR)
  Receive Date: 20201223
  Receipt Date: 20201223
  Transmission Date: 20210114
  Serious: Yes (Other)
  Sender: FDA-Public Use
  Company Number: HR-EMD SERONO-9207213

PATIENT
  Age: 35 Year
  Sex: Female

DRUGS (2)
  1. CETROTIDE [Suspect]
     Active Substance: CETRORELIX ACETATE
     Indication: IN VITRO FERTILISATION
     Dates: start: 2018, end: 2018
  2. PERGOVERIS [Suspect]
     Active Substance: FOLLITROPIN\LUTROPIN ALFA
     Indication: IN VITRO FERTILISATION
     Dates: start: 2018, end: 2018

REACTIONS (1)
  - Prolonged labour [Recovered/Resolved]
